FAERS Safety Report 6592942-6 (Version None)
Quarter: 2010Q1

REPORT INFORMATION
  Report Type: 
  Country: None (occurrence: None)
  Receive Date: 20100222
  Receipt Date: 20100211
  Transmission Date: 20100710
  Serious: Yes (Death, Other)
  Sender: FDA-Public Use
  Company Number: TR-ELI_LILLY_AND_COMPANY-TR201002003400

PATIENT
  Age: 68 Year
  Sex: Female

DRUGS (5)
  1. HUMULIN R [Suspect]
     Indication: DIABETES MELLITUS
     Dosage: 20 IU, EACH MORNING
     Route: 058
     Dates: start: 19990101, end: 20090813
  2. HUMULIN R [Suspect]
     Dosage: 20 IU, OTHER
     Route: 058
     Dates: start: 19990101, end: 20090813
  3. HUMULIN R [Suspect]
     Dosage: 20 IU, EACH EVENING
     Route: 058
     Dates: start: 19990101, end: 20090813
  4. HUMULIN N [Suspect]
     Indication: DIABETES MELLITUS
     Dosage: 20 IU, DAILY (1/D)
     Route: 058
     Dates: start: 19990101, end: 20090813
  5. ANTIHYPERTENSIVES [Concomitant]
     Indication: HYPERTENSION
     Dosage: UNK, 2/D
     Dates: start: 19990101, end: 20090813

REACTIONS (1)
  - CARDIAC FAILURE [None]
